FAERS Safety Report 20759904 (Version 3)
Quarter: 2022Q2

REPORT INFORMATION
  Report Type: Spontaneous
  Country: JP (occurrence: JP)
  Receive Date: 20220427
  Receipt Date: 20220529
  Transmission Date: 20220720
  Serious: Yes (Hospitalization, Other)
  Sender: FDA-Public Use
  Company Number: JP-NOVARTISPH-NVSJ2022JP004582

PATIENT
  Age: 75 Year
  Sex: Female
  Weight: 35.5 kg

DRUGS (9)
  1. TAFINLAR [Suspect]
     Active Substance: DABRAFENIB MESYLATE
     Indication: Lung adenocarcinoma
     Dosage: 150 MG, BID
     Route: 048
     Dates: start: 20220106, end: 20220217
  2. TAFINLAR [Suspect]
     Active Substance: DABRAFENIB MESYLATE
     Dosage: 150 MG, BID
     Route: 048
     Dates: start: 20220315
  3. MEKINIST [Suspect]
     Active Substance: TRAMETINIB DIMETHYL SULFOXIDE
     Indication: Lung adenocarcinoma
     Dosage: 2 MG
     Route: 048
     Dates: start: 20220106, end: 20220217
  4. MEKINIST [Suspect]
     Active Substance: TRAMETINIB DIMETHYL SULFOXIDE
     Dosage: 2 MG
     Route: 048
     Dates: start: 20220315
  5. EDOXABAN TOSYLATE [Suspect]
     Active Substance: EDOXABAN TOSYLATE
     Indication: Atrial fibrillation
     Dosage: 30 MG
     Route: 048
     Dates: start: 20180308
  6. VASOLAN [Concomitant]
     Indication: Atrial fibrillation
     Dosage: 80 MG, BID
     Route: 048
     Dates: start: 20180301
  7. PILSICAINIDE HYDROCHLORIDE [Concomitant]
     Active Substance: PILSICAINIDE HYDROCHLORIDE
     Indication: Atrial fibrillation
     Dosage: 50 MG, TID
     Route: 048
     Dates: start: 20180306
  8. BISOPROLOL FUMARATE [Concomitant]
     Active Substance: BISOPROLOL FUMARATE
     Indication: Atrial fibrillation
     Dosage: 2.5 MG, QD
     Route: 048
     Dates: start: 20180330
  9. LIPITOR [Concomitant]
     Active Substance: ATORVASTATIN CALCIUM
     Indication: Hyperlipidaemia
     Dosage: 5 MG, QD
     Route: 048
     Dates: start: 20160918

REACTIONS (9)
  - Gastric ulcer haemorrhage [Recovered/Resolved]
  - Faeces discoloured [Unknown]
  - Malaise [Unknown]
  - Peptic ulcer [Unknown]
  - Decreased appetite [Unknown]
  - Anaemia [Recovered/Resolved]
  - Hypoalbuminaemia [Recovered/Resolved]
  - International normalised ratio increased [Unknown]
  - Platelet count decreased [Recovered/Resolved]

NARRATIVE: CASE EVENT DATE: 20220210
